FAERS Safety Report 7501517-3 (Version None)
Quarter: 2011Q2

REPORT INFORMATION
  Report Type: 
  Country: None (occurrence: None)
  Receive Date: 20110524
  Receipt Date: 20110516
  Transmission Date: 20111010
  Serious: Yes (Hospitalization)
  Sender: FDA-Public Use
  Company Number: PHHO2011DE08394

PATIENT
  Sex: Male

DRUGS (6)
  1. RAMIPRIL [Concomitant]
  2. EXJADE [Suspect]
  3. METFORMIN HCL [Concomitant]
  4. METOPROLOL SUCCINATE [Concomitant]
  5. ASPIRIN [Concomitant]
  6. LBH589 [Suspect]
     Indication: MYELODYSPLASTIC SYNDROME
     Dosage: 20 MG, MWF
     Route: 048
     Dates: end: 20110513

REACTIONS (1)
  - RHABDOMYOLYSIS [None]
